FAERS Safety Report 7554566-3 (Version None)
Quarter: 2011Q2

REPORT INFORMATION
  Report Type: 
  Country: None (occurrence: None)
  Receive Date: 20110617
  Receipt Date: 20110608
  Transmission Date: 20111010
  Serious: Yes (Hospitalization, Other)
  Sender: FDA-Public Use
  Company Number: DE-ROCHE-776662

PATIENT
  Sex: Male
  Weight: 67 kg

DRUGS (14)
  1. DEXAMETHASONE [Suspect]
     Indication: BURKITT'S LYMPHOMA
     Route: 065
     Dates: start: 20100715, end: 20110126
  2. VALCYTE [Suspect]
     Route: 065
  3. ETOPOSIDE [Suspect]
     Indication: BURKITT'S LYMPHOMA
     Route: 065
     Dates: start: 20100715, end: 20110126
  4. PREZISTA [Concomitant]
     Indication: HIV INFECTION
     Dates: start: 20100701
  5. RITUXAN [Suspect]
     Indication: BURKITT'S LYMPHOMA
     Dosage: GIVEN ACCORDING TO B-ALL PROTOCOL AND TWO EXTRA ADMINISTRATIONS
     Route: 065
     Dates: start: 20100715, end: 20110126
  6. METHOTREXATE [Suspect]
     Indication: BURKITT'S LYMPHOMA
     Route: 065
     Dates: start: 20100715, end: 20110126
  7. VINDESINE [Suspect]
     Indication: BURKITT'S LYMPHOMA
     Route: 065
     Dates: start: 20100715, end: 20110126
  8. NORVIR [Concomitant]
     Indication: HIV INFECTION
     Dates: start: 20100701
  9. CYTARABINE [Suspect]
     Indication: BURKITT'S LYMPHOMA
     Dosage: GIVEN TWICE
     Route: 065
     Dates: start: 20100914, end: 20110126
  10. CYCLOPHOSPHAMIDE [Suspect]
     Indication: BURKITT'S LYMPHOMA
     Route: 065
     Dates: start: 20100715, end: 20110126
  11. VINCRISTINE [Suspect]
     Indication: BURKITT'S LYMPHOMA
     Route: 065
     Dates: start: 20100715, end: 20110126
  12. TRUVADA [Concomitant]
     Indication: HIV INFECTION
     Dates: start: 20100701
  13. IFOSFAMIDE [Suspect]
     Indication: BURKITT'S LYMPHOMA
     Route: 065
     Dates: start: 20100715, end: 20110126
  14. DOXORUBICIN HCL [Suspect]
     Indication: BURKITT'S LYMPHOMA
     Route: 065
     Dates: start: 20100715, end: 20110126

REACTIONS (2)
  - CYTOMEGALOVIRUS CHORIORETINITIS [None]
  - VISUAL ACUITY REDUCED [None]
